FAERS Safety Report 7817419-9 (Version None)
Quarter: 2011Q4

REPORT INFORMATION
  Report Type: 
  Country: None (occurrence: None)
  Receive Date: 20111017
  Receipt Date: 20110921
  Transmission Date: 20120403
  Serious: Yes (Other)
  Sender: FDA-Public Use
  Company Number: DE-ROCHE-1003340

PATIENT
  Sex: Female
  Weight: 80 kg

DRUGS (3)
  1. GRANISETRON [Concomitant]
     Dates: start: 20110720
  2. OXALIPLATIN [Suspect]
     Indication: COLORECTAL CANCER
     Dosage: ON DAY1-DAY8
     Route: 042
     Dates: start: 20110720, end: 20110915
  3. XELODA [Suspect]
     Indication: COLORECTAL CANCER
     Dosage: ON DAY1-DAY14
     Route: 048
     Dates: start: 20110720, end: 20110915

REACTIONS (2)
  - BLOOD BLISTER [None]
  - TONSILLAR HAEMORRHAGE [None]
